FAERS Safety Report 7683303-7 (Version None)
Quarter: 2011Q3

REPORT INFORMATION
  Report Type: 
  Country: None (occurrence: None)
  Receive Date: 20110815
  Receipt Date: 20110804
  Transmission Date: 20111222
  Serious: Yes (Hospitalization)
  Sender: FDA-Public Use
  Company Number: JP-GLAXOSMITHKLINE-B0722956A

PATIENT
  Sex: Female
  Weight: 62 kg

DRUGS (8)
  1. FAMOTIDINE [Concomitant]
     Indication: PROPHYLAXIS
     Dosage: 20MG PER DAY
     Route: 048
  2. TIZANIDINE HYDROCHLORIDE [Concomitant]
     Indication: MUSCULOSKELETAL STIFFNESS
     Dosage: 2MG PER DAY
     Route: 048
     Dates: end: 20110608
  3. TRANEXAMIC ACID [Concomitant]
     Indication: EPISTAXIS
     Dosage: 1500MG PER DAY
     Route: 048
  4. PREDNISOLONE [Concomitant]
     Dates: start: 20110611
  5. PROMACTA [Suspect]
     Indication: IDIOPATHIC THROMBOCYTOPENIC PURPURA
     Route: 048
     Dates: start: 20110314, end: 20110511
  6. UNKNOWN [Concomitant]
     Indication: EPISTAXIS
     Dosage: 90MG PER DAY
     Route: 048
  7. PRIMOBOLAN-DEPOT INJ [Concomitant]
     Indication: IDIOPATHIC THROMBOCYTOPENIC PURPURA
     Dosage: 15MG PER DAY
     Route: 048
  8. FERROUS CITRATE [Concomitant]
     Indication: IRON DEFICIENCY
     Dosage: 100MG PER DAY
     Route: 048
     Dates: end: 20110608

REACTIONS (2)
  - ANAEMIA [None]
  - ERYTHROBLAST COUNT [None]
